FAERS Safety Report 8154295-1 (Version None)
Quarter: 2012Q1

REPORT INFORMATION
  Report Type: 
  Country: None (occurrence: None)
  Receive Date: 20120221
  Receipt Date: 20120214
  Transmission Date: 20120608
  Serious: Yes (Death, Hospitalization)
  Sender: FDA-Public Use
  Company Number: DE-ACTELION-A-US2011-45377

PATIENT

DRUGS (5)
  1. SILDENAFIL [Concomitant]
  2. VENTAVIS [Suspect]
     Indication: PULMONARY ARTERIAL HYPERTENSION
     Dosage: UNK, 6 TIMES/DAY
     Route: 055
     Dates: start: 20090828, end: 20110317
  3. TRACLEER [Concomitant]
     Indication: PULMONARY ARTERIAL HYPERTENSION
     Route: 048
  4. SPIRONOLACTONE [Concomitant]
  5. ANTITHROMBOTIC AGENTS [Concomitant]

REACTIONS (21)
  - RENAL FAILURE ACUTE [None]
  - PULMONARY ARTERIAL HYPERTENSION [None]
  - IRON DEFICIENCY ANAEMIA [None]
  - DIALYSIS [None]
  - OXYGEN SATURATION DECREASED [None]
  - INFECTION [None]
  - RIGHT VENTRICULAR FAILURE [None]
  - DYSPNOEA [None]
  - SEPTIC SHOCK [None]
  - CARDIOGENIC SHOCK [None]
  - DISEASE PROGRESSION [None]
  - URINARY TRACT INFECTION [None]
  - ANURIA [None]
  - CARDIAC FAILURE [None]
  - GASTRITIS EROSIVE [None]
  - CHEST DISCOMFORT [None]
  - DIZZINESS [None]
  - PYREXIA [None]
  - BLEEDING VARICOSE VEIN [None]
  - DEVICE RELATED SEPSIS [None]
  - PALPITATIONS [None]
